FAERS Safety Report 4632397-1 (Version None)
Quarter: 2005Q2

REPORT INFORMATION
  Report Type: 
  Country: None (occurrence: None)
  Receive Date: 20050411
  Receipt Date: 20050225
  Transmission Date: 20051028
  Serious: Yes (Death)
  Sender: FDA-Public Use
  Company Number: GB-BOEHRINGER INGELHEIM PHARMACEUTICALS, INC.-2005-BP-03252YA

PATIENT
  Sex: Male

DRUGS (11)
  1. FLOMAX [Suspect]
     Indication: URINE ANALYSIS ABNORMAL
     Route: 048
     Dates: start: 20041111, end: 20041119
  2. CYCLOSPORINE [Suspect]
     Indication: IMMUNOSUPPRESSION
     Route: 048
     Dates: start: 20041001, end: 20041119
  3. SIMVASTATIN [Suspect]
     Indication: HYPERCHOLESTEROLAEMIA
     Route: 048
     Dates: start: 20010901, end: 20041115
  4. COTRIM [Concomitant]
     Indication: INFECTION PROPHYLAXIS
     Route: 048
     Dates: start: 20041001, end: 20041119
  5. LANSOPRAZOLE [Concomitant]
     Indication: GASTRIC ULCER
     Route: 048
     Dates: start: 20041001, end: 20041119
  6. PREDNISOLONE [Concomitant]
     Indication: IMMUNOSUPPRESSION
     Route: 048
     Dates: start: 20041001, end: 20041119
  7. CALCITRIOL [Concomitant]
     Indication: VITAMIN D ABNORMAL
     Route: 048
     Dates: start: 20041001, end: 20041119
  8. PARACETAMOL [Concomitant]
     Indication: PAIN
     Route: 048
     Dates: start: 20041001, end: 20041119
  9. MYCOPHENOLATE SODIUM [Concomitant]
     Indication: IMMUNOSUPPRESSION
     Route: 048
     Dates: start: 20041001, end: 20041119
  10. ACETYL SALICYLIC ACID USP BAT [Concomitant]
     Indication: ANTICOAGULANT THERAPY
     Route: 048
     Dates: start: 20010901, end: 20041119
  11. FUROSEMIDE [Concomitant]
     Indication: DIURETIC THERAPY
     Dates: end: 20041119

REACTIONS (5)
  - ARRHYTHMIA [None]
  - BLOOD POTASSIUM INCREASED [None]
  - CARDIAC ARREST [None]
  - PAIN [None]
  - RHABDOMYOLYSIS [None]
